FAERS Safety Report 7423167-X (Version None)
Quarter: 2011Q2

REPORT INFORMATION
  Report Type: 
  Country: None (occurrence: None)
  Receive Date: 20110419
  Receipt Date: 20110404
  Transmission Date: 20111010
  Serious: Yes (Hospitalization)
  Sender: FDA-Public Use
  Company Number: FR-JNJFOC-20110402748

PATIENT
  Sex: Male
  Weight: 2.45 kg

DRUGS (10)
  1. RISPERDAL [Suspect]
     Dosage: DRUG EXPOSURE VIA BREAST MILK
     Route: 063
  2. RISPERDAL [Suspect]
     Indication: DRUG EXPOSURE VIA BREAST MILK
     Dosage: DRUG EXPOSURE IN UTERO
     Route: 063
  3. RISPERDAL [Suspect]
     Indication: DRUG EXPOSURE DURING PREGNANCY
     Dosage: DRUG EXPOSURE IN UTERO
     Route: 063
  4. RISPERDAL [Suspect]
     Dosage: DRUG EXPOSURE IN UTERO
     Route: 063
  5. TARDYFERON [Concomitant]
     Indication: DRUG EXPOSURE DURING PREGNANCY
     Route: 064
     Dates: start: 20101001, end: 20101218
  6. FEMIBION [Concomitant]
     Indication: DRUG EXPOSURE DURING PREGNANCY
     Route: 064
     Dates: start: 20100801, end: 20101218
  7. RISPERDAL [Suspect]
     Dosage: DRUG EXPOSURE VIA BREAST MILK
     Route: 063
  8. RISPERDAL [Suspect]
     Dosage: DRUG EXPOSURE IN UTERO
     Route: 063
  9. SPECIAFOLDINE [Concomitant]
     Indication: DRUG EXPOSURE DURING PREGNANCY
     Route: 064
     Dates: end: 20100801
  10. PROCTOLOG [Concomitant]
     Indication: DRUG EXPOSURE DURING PREGNANCY
     Route: 064
     Dates: start: 20101101, end: 20101218

REACTIONS (3)
  - JAUNDICE NEONATAL [None]
  - BREAST FEEDING [None]
  - PREMATURE BABY [None]
